FAERS Safety Report 10871321 (Version 1)
Quarter: 2015Q1

REPORT INFORMATION
  Report Type: Spontaneous
  Country: TR (occurrence: None)
  Receive Date: 20150223
  Receipt Date: 20150223
  Transmission Date: 20150721
  Serious: No
  Sender: FDA-Public Use
  Company Number: None

PATIENT
  Age: 40 Year
  Sex: Female
  Weight: 50 kg

DRUGS (3)
  1. MULTIVITAMINS [Concomitant]
     Active Substance: VITAMINS
  2. PROZAC [Concomitant]
     Active Substance: FLUOXETINE HYDROCHLORIDE
  3. TRETINOIN. [Suspect]
     Active Substance: TRETINOIN
     Dosage: LITTLE AMOUNT OF CREAM, APPLIED TO SURFACE USUALLY THE SKIN
     Route: 061

REACTIONS (1)
  - Gastric ulcer [None]

NARRATIVE: CASE EVENT DATE: 20150219
